FAERS Safety Report 5683375-5 (Version None)
Quarter: 2008Q1

REPORT INFORMATION
  Report Type: 
  Country: None (occurrence: None)
  Receive Date: 20080326
  Receipt Date: 20080311
  Transmission Date: 20080703
  Serious: Yes (Other)
  Sender: FDA-Public Use
  Company Number: 2008S1004370

PATIENT
  Age: 43 Year
  Sex: Male

DRUGS (1)
  1. SALBUTAMOL [Suspect]
     Indication: DRUG USE FOR UNKNOWN INDICATION

REACTIONS (7)
  - ASTHMA [None]
  - CHOKING SENSATION [None]
  - FOREIGN BODY ASPIRATION [None]
  - OBSTRUCTIVE AIRWAYS DISORDER [None]
  - PNEUMOMEDIASTINUM [None]
  - PNEUMOTHORAX [None]
  - WHEEZING [None]
